FAERS Safety Report 5833979-1 (Version None)
Quarter: 2008Q3

REPORT INFORMATION
  Report Type: 
  Country: None (occurrence: None)
  Receive Date: 20080731
  Receipt Date: 20080721
  Transmission Date: 20090109
  Serious: Yes (Hospitalization)
  Sender: FDA-Public Use
  Company Number: SPV1-2008-01416

PATIENT
  Age: 47 Year
  Sex: Female
  Weight: 65.8 kg

DRUGS (9)
  1. VYVANSE [Suspect]
     Indication: ATTENTION DEFICIT/HYPERACTIVITY DISORDER
     Dosage: 30 MG, 1X/DAY:QD, ORAL, 30 MG, 1X/DAY:QD, ORAL
     Route: 048
     Dates: start: 20080612, end: 20080626
  2. VYVANSE [Suspect]
     Indication: ATTENTION DEFICIT/HYPERACTIVITY DISORDER
     Dosage: 30 MG, 1X/DAY:QD, ORAL, 30 MG, 1X/DAY:QD, ORAL
     Route: 048
     Dates: start: 20080629
  3. TRAZODONE HCL [Concomitant]
  4. PAXIL [Concomitant]
  5. PROVENTIL (SALBUTAMOL) INHALATION GAS [Concomitant]
  6. ATROVENT (IPRATROPIUM BROMIDE) INHALATION GAS [Concomitant]
  7. SINGULAIR (MONTELUKAST) TABLET [Concomitant]
  8. FLOVENT (FLUTICASONE PROPIONATE) INHALATION GAS [Concomitant]
  9. LORTAB [Concomitant]

REACTIONS (4)
  - GALLBLADDER DISORDER [None]
  - INCISION SITE COMPLICATION [None]
  - PROCEDURAL PAIN [None]
  - RASH [None]
